FAERS Safety Report 20201374 (Version 1)
Quarter: 2021Q4

REPORT INFORMATION
  Report Type: Spontaneous
  Country: US (occurrence: US)
  Receive Date: 20211217
  Receipt Date: 20211217
  Transmission Date: 20220303
  Serious: No
  Sender: FDA-Public Use
  Company Number: US-CATALYST PHARMACEUTICALS, INC-2021CAT00398

PATIENT
  Sex: Female

DRUGS (8)
  1. FIRDAPSE [Suspect]
     Active Substance: AMIFAMPRIDINE PHOSPHATE
     Indication: Myasthenic syndrome
     Dosage: 1/2 TABLET (5 MG), 3X/DAY FOR THREE DAYS
     Dates: start: 20210901, end: 20210902
  2. FIRDAPSE [Suspect]
     Active Substance: AMIFAMPRIDINE PHOSPHATE
     Dosage: UNK, INCREASE BY 1/2 TABLET EVERY THREE DAYS UNTIL 10MG 3X/DAY IS REACHED
     Dates: start: 20210903, end: 202109
  3. FIRDAPSE [Suspect]
     Active Substance: AMIFAMPRIDINE PHOSPHATE
     Dosage: 60 MG DAILY
     Dates: start: 202109, end: 20210920
  4. FIRDAPSE [Suspect]
     Active Substance: AMIFAMPRIDINE PHOSPHATE
     Dosage: 80 MG DAILY
     Dates: start: 20210921
  5. ENBREL [Concomitant]
     Active Substance: ETANERCEPT
  6. GAMUNEX [Concomitant]
     Active Substance: HUMAN IMMUNOGLOBULIN G
  7. VITAMIN D [Concomitant]
     Active Substance: VITAMIN D NOS
  8. TYLENOL [Concomitant]
     Active Substance: ACETAMINOPHEN

REACTIONS (7)
  - Fatigue [Not Recovered/Not Resolved]
  - Lethargy [Not Recovered/Not Resolved]
  - Throat irritation [Unknown]
  - Arthralgia [Unknown]
  - Asthenia [Not Recovered/Not Resolved]
  - Peripheral swelling [Unknown]
  - Pain in extremity [Unknown]

NARRATIVE: CASE EVENT DATE: 20210101
